FAERS Safety Report 11202169 (Version 2)
Quarter: 2015Q3

REPORT INFORMATION
  Report Type: Spontaneous
  Country: US (occurrence: US)
  Receive Date: 20150619
  Receipt Date: 20150909
  Transmission Date: 20151125
  Serious: Yes (Hospitalization, Disabling)
  Sender: FDA-Public Use
  Company Number: US-ENDO PHARMACEUTICALS INC.-2015-001426

PATIENT
  Age: 56 Year
  Sex: Male
  Weight: 129.39 kg

DRUGS (6)
  1. DELATESTRYL [Suspect]
     Active Substance: TESTOSTERONE ENANTHATE
     Indication: ANDROGEN REPLACEMENT THERAPY
     Dosage: ALSO REPORTED AS USING SINCE ^THE 1960S^
     Route: 030
     Dates: start: 1987, end: 2013
  2. TESTIM [Suspect]
     Active Substance: TESTOSTERONE
     Indication: ANDROGEN REPLACEMENT THERAPY
     Dosage: ALSO REPORTED AS USING SINCE ^THE 1960S^
     Route: 062
     Dates: start: 1987, end: 2013
  3. TESTOPEL [Suspect]
     Active Substance: TESTOSTERONE
     Indication: ANDROGEN REPLACEMENT THERAPY
     Dosage: ALSO REPORTED AS USING SINCE ^THE 1960S^
     Route: 058
     Dates: start: 1987, end: 2013
  4. BENAZEPRIL [Concomitant]
     Active Substance: BENAZEPRIL HYDROCHLORIDE
     Indication: BLOOD PRESSURE MEASUREMENT
     Route: 065
     Dates: start: 2001
  5. ANDROGEL [Suspect]
     Active Substance: TESTOSTERONE
     Indication: ANDROGEN REPLACEMENT THERAPY
     Dosage: ALSO REPORTED AS USING SINCE ^THE 1960S^
     Route: 065
     Dates: start: 1987, end: 2013
  6. TESTOSTERONE PATCH [Suspect]
     Active Substance: TESTOSTERONE
     Indication: ANDROGEN REPLACEMENT THERAPY
     Dosage: ALSO REPORTED AS USING SINCE ^THE 1960S^
     Route: 062
     Dates: start: 1987, end: 2013

REACTIONS (1)
  - Cerebrovascular accident [Not Recovered/Not Resolved]

NARRATIVE: CASE EVENT DATE: 201107
